FAERS Safety Report 25827080 (Version 1)
Quarter: 2025Q3

REPORT INFORMATION
  Report Type: Spontaneous
  Country: US (occurrence: US)
  Receive Date: 20250920
  Receipt Date: 20250920
  Transmission Date: 20251021
  Serious: No
  Sender: ABBVIE
  Company Number: US-ABBVIE-6463742

PATIENT
  Age: 75 Year
  Sex: Male

DRUGS (1)
  1. SKYRIZI [Suspect]
     Active Substance: RISANKIZUMAB-RZAA
     Indication: Psoriasis
     Route: 058

REACTIONS (6)
  - Wrong technique in product usage process [Unknown]
  - Back pain [Unknown]
  - Renal pain [Unknown]
  - Discomfort [Unknown]
  - Pollakiuria [Unknown]
  - Product communication issue [Unknown]

NARRATIVE: CASE EVENT DATE: 20250902
